FAERS Safety Report 6758577-7 (Version None)
Quarter: 2010Q2

REPORT INFORMATION
  Report Type: 
  Country: None (occurrence: None)
  Receive Date: 20100607
  Receipt Date: 20100601
  Transmission Date: 20101027
  Serious: Yes (Other)
  Sender: FDA-Public Use
  Company Number: FR-EISAI INC.-E3810-03777-SPO-FR

PATIENT
  Age: 83 Year
  Sex: Male
  Weight: 92 kg

DRUGS (5)
  1. PARIET (RABEPRAZOLE) [Suspect]
     Indication: GASTROOESOPHAGEAL REFLUX DISEASE
     Route: 048
     Dates: start: 20050401, end: 20081221
  2. RAMIPRIL [Concomitant]
     Route: 065
  3. AMLODIPINE BESYLATE [Concomitant]
     Route: 065
  4. MODUCREN [Concomitant]
     Dosage: UNKNOWN
     Route: 065
  5. OXAZEPAM [Concomitant]
     Dosage: UNKNOWN
     Route: 065

REACTIONS (1)
  - GASTROINTESTINAL HAEMORRHAGE [None]
